FAERS Safety Report 16463615 (Version 1)
Quarter: 2019Q2

REPORT INFORMATION
  Report Type: Spontaneous
  Country: US (occurrence: US)
  Receive Date: 20190621
  Receipt Date: 20190621
  Transmission Date: 20190711
  Serious: No
  Sender: FDA-Public Use
  Company Number: US-ADAMAS PHARMA, LLC-2019ADA00739

PATIENT
  Sex: Female

DRUGS (9)
  1. GOCOVRI [Suspect]
     Active Substance: AMANTADINE
     Dosage: 274 MG, 1X/DAY AT BEDTIME
     Route: 048
     Dates: start: 20190219, end: 2019
  2. AZILECT [Concomitant]
     Active Substance: RASAGILINE MESYLATE
  3. REQUIP XL [Concomitant]
     Active Substance: ROPINIROLE HYDROCHLORIDE
  4. CARBIDOPA/ LEVODOPA [Concomitant]
     Active Substance: CARBIDOPA\LEVODOPA
  5. COREG [Concomitant]
     Active Substance: CARVEDILOL
  6. AMANTADINE. [Concomitant]
     Active Substance: AMANTADINE HYDROCHLORIDE
  7. ALOGLIPTIN. [Concomitant]
     Active Substance: ALOGLIPTIN
  8. ENTACAPONE. [Concomitant]
     Active Substance: ENTACAPONE
  9. IRBESARTAN. [Concomitant]
     Active Substance: IRBESARTAN

REACTIONS (2)
  - Musculoskeletal stiffness [Unknown]
  - Gait inability [Unknown]

NARRATIVE: CASE EVENT DATE: 2019
